FAERS Safety Report 11436445 (Version 1)
Quarter: 2015Q3

REPORT INFORMATION
  Report Type: Spontaneous
  Country: US (occurrence: US)
  Receive Date: 20150821
  Receipt Date: 20150821
  Transmission Date: 20151125
  Serious: No
  Sender: FDA-Public Use
  Company Number: US-ELI_LILLY_AND_COMPANY-US201405007073

PATIENT
  Age: 63 Year
  Sex: Male
  Weight: 69.39 kg

DRUGS (3)
  1. HUMAN INSULIN (RDNA ORIGIN) REGULAR [Suspect]
     Active Substance: INSULIN HUMAN
     Indication: TYPE 2 DIABETES MELLITUS
     Dosage: 15 DF, OTHER
     Route: 065
     Dates: start: 20140509
  2. LISINOPRIL. [Concomitant]
     Active Substance: LISINOPRIL
     Dosage: 10 MG, EACH MORNING
     Route: 065
  3. HUMULIN N [Suspect]
     Active Substance: INSULIN HUMAN
     Indication: TYPE 2 DIABETES MELLITUS
     Dosage: 50 DF, PRN
     Route: 065
     Dates: start: 20140509

REACTIONS (1)
  - Blood glucose increased [Unknown]
